FAERS Safety Report 14777295 (Version 1)
Quarter: 2018Q2

REPORT INFORMATION
  Report Type: Spontaneous
  Country: DE (occurrence: DE)
  Receive Date: 20180419
  Receipt Date: 20180419
  Transmission Date: 20180711
  Serious: Yes (Other)
  Sender: FDA-Public Use
  Company Number: DE-TEVA-2018-DE-882703

PATIENT
  Age: 37 Year
  Sex: Female
  Weight: 61 kg

DRUGS (1)
  1. CIPROFLOXACIN. [Suspect]
     Active Substance: CIPROFLOXACIN
     Indication: CYSTITIS NONINFECTIVE
     Dosage: 1000 MILLIGRAM DAILY;
     Route: 048
     Dates: start: 20171009

REACTIONS (6)
  - Back pain [Recovered/Resolved]
  - Tendonitis [Recovered/Resolved]
  - Joint swelling [Recovered/Resolved]
  - Movement disorder [Recovered/Resolved]
  - Papilloedema [Recovered/Resolved]
  - Pain in extremity [Recovered/Resolved]

NARRATIVE: CASE EVENT DATE: 201710
